FAERS Safety Report 10144273 (Version 1)
Quarter: 2014Q2

REPORT INFORMATION
  Report Type: Spontaneous
  Country: US (occurrence: US)
  Receive Date: 20140430
  Receipt Date: 20140430
  Transmission Date: 20141212
  Serious: No
  Sender: FDA-Public Use
  Company Number: US-009507513-1404USA015588

PATIENT
  Sex: 0

DRUGS (1)
  1. INTRONA [Suspect]
     Indication: PROPHYLAXIS
     Dosage: 10 MILLION UNITS PER ML, DOSE UNSPECIFIED, SUBCONJUNTIVAL INJECTION
     Route: 047

REACTIONS (2)
  - Eye irritation [Unknown]
  - Off label use [Unknown]
